FAERS Safety Report 25847564 (Version 1)
Quarter: 2025Q3

REPORT INFORMATION
  Report Type: Spontaneous
  Country: GB (occurrence: GB)
  Receive Date: 20250925
  Receipt Date: 20250925
  Transmission Date: 20251020
  Serious: Yes (Other)
  Sender: ABBVIE
  Company Number: GB-ABBVIE-6475156

PATIENT
  Age: 43 Year
  Sex: Female
  Weight: 70 kg

DRUGS (3)
  1. NITROGLYCERIN [Suspect]
     Active Substance: NITROGLYCERIN
     Indication: Anal fissure
     Route: 065
     Dates: start: 20250912
  2. NITROGLYCERIN [Suspect]
     Active Substance: NITROGLYCERIN
     Indication: Anal fissure
     Route: 065
  3. DOCUSATE SODIUM [Concomitant]
     Active Substance: DOCUSATE SODIUM
     Indication: Constipation
     Dates: start: 20250912

REACTIONS (5)
  - Visual field defect [Unknown]
  - Migraine with aura [Unknown]
  - Dizziness [Unknown]
  - Aura [Unknown]
  - Medication error [Unknown]

NARRATIVE: CASE EVENT DATE: 20250912
